FAERS Safety Report 24175859 (Version 1)
Quarter: 2024Q3

REPORT INFORMATION
  Report Type: Report from Study
  Country: US (occurrence: US)
  Receive Date: 20240805
  Receipt Date: 20240805
  Transmission Date: 20241017
  Serious: Yes (Other)
  Sender: ABBVIE
  Company Number: US-ABBVIE-5865656

PATIENT
  Age: 61 Year
  Sex: Female

DRUGS (1)
  1. RINVOQ [Suspect]
     Active Substance: UPADACITINIB
     Indication: Colitis ulcerative
     Dosage: STRENGTH: 45 MG? FOR 8 WEEKS
     Route: 048
     Dates: start: 20240613

REACTIONS (4)
  - Nasal septum deviation [Unknown]
  - Fatigue [Unknown]
  - Procedural pain [Unknown]
  - Post procedural complication [Unknown]

NARRATIVE: CASE EVENT DATE: 20240716
